FAERS Safety Report 8791129 (Version 1)
Quarter: 2012Q4

REPORT INFORMATION
  Report Type: Spontaneous
  Country: US (occurrence: None)
  Receive Date: 20120910
  Receipt Date: 20120910
  Transmission Date: 20130627
  Serious: Yes (Other)
  Sender: FDA-Public Use
  Company Number: FK201202537

PATIENT
  Age: 74 Year

DRUGS (1)
  1. FLUDARABINE [Suspect]
     Indication: PRODUCT USED FOR UNKNOWN INDICATION

REACTIONS (6)
  - Fatigue [None]
  - Sepsis [None]
  - Cough [None]
  - Pyrexia [None]
  - Neutrophil count decreased [None]
  - Febrile neutropenia [None]
